FAERS Safety Report 7609498-9 (Version None)
Quarter: 2011Q3

REPORT INFORMATION
  Report Type: 
  Country: None (occurrence: None)
  Receive Date: 20110714
  Receipt Date: 20110706
  Transmission Date: 20111222
  Serious: Yes (Other)
  Sender: FDA-Public Use
  Company Number: PHHY2011US60721

PATIENT
  Age: 62 Year
  Sex: Male

DRUGS (9)
  1. VARDENAFIL HYDROCHLORIDE (LEVITRA) [Concomitant]
  2. COLCHICINE [Interacting]
     Indication: GOUT
     Dosage: 0.6 MG, BID
  3. MYCOPHENOLATE MOFETIL [Concomitant]
  4. NIFEDIPINE [Concomitant]
  5. TACROLIMUS [Suspect]
     Indication: IMMUNOSUPPRESSION
     Dosage: UNK UKN, UNK
  6. ATENOLOL [Concomitant]
  7. ALLOPURINOL [Concomitant]
  8. OMEPRAZOLE [Concomitant]
  9. LOSARTAN [Concomitant]

REACTIONS (4)
  - TOXICITY TO VARIOUS AGENTS [None]
  - HEPATIC ENZYME ABNORMAL [None]
  - DRUG INTERACTION [None]
  - MUSCLE ENZYME INCREASED [None]
